FAERS Safety Report 23193395 (Version 1)
Quarter: 2023Q4

REPORT INFORMATION
  Report Type: Spontaneous
  Country: US (occurrence: US)
  Receive Date: 20231116
  Receipt Date: 20231116
  Transmission Date: 20240109
  Serious: No
  Sender: FDA-Public Use
  Company Number: US-Calliditas-2023CAL01438

PATIENT
  Age: 64 Year
  Sex: Male
  Weight: 85.5 kg

DRUGS (1)
  1. TARPEYO [Suspect]
     Active Substance: BUDESONIDE
     Indication: Haematuria
     Dosage: 16MG (4MG CAPSULES) ONCE DAILY
     Route: 048
     Dates: start: 20230721

REACTIONS (6)
  - Insomnia [Unknown]
  - Muscular weakness [Unknown]
  - Muscle fatigue [Unknown]
  - Vision blurred [Unknown]
  - Eye disorder [Unknown]
  - Cough [Unknown]
